FAERS Safety Report 7501266-1 (Version None)
Quarter: 2011Q2

REPORT INFORMATION
  Report Type: 
  Country: None (occurrence: None)
  Receive Date: 20110524
  Receipt Date: 20110516
  Transmission Date: 20111010
  Serious: Yes (Hospitalization)
  Sender: FDA-Public Use
  Company Number: US-ELI_LILLY_AND_COMPANY-US201105004611

PATIENT
  Sex: Female

DRUGS (4)
  1. PREDNISONE [Concomitant]
     Indication: DYSPNOEA
     Dosage: 10 MG, UNK
  2. BYETTA [Suspect]
     Indication: TYPE 2 DIABETES MELLITUS
     Dosage: 5 UG, QD
     Route: 058
  3. BYETTA [Suspect]
     Dosage: 10 UG, QD
     Route: 058
     Dates: start: 20110514
  4. PREDNISONE [Concomitant]
     Dosage: 7.5 MG, UNK

REACTIONS (5)
  - DYSPNOEA [None]
  - BLOOD GLUCOSE INCREASED [None]
  - UNDERDOSE [None]
  - PULMONARY VENO-OCCLUSIVE DISEASE [None]
  - PULMONARY HYPERTENSION [None]
